FAERS Safety Report 9528672 (Version 1)
Quarter: 2013Q3

REPORT INFORMATION
  Report Type: Spontaneous
  Country: US (occurrence: US)
  Receive Date: 20130917
  Receipt Date: 20130917
  Transmission Date: 20140515
  Serious: No
  Sender: FDA-Public Use
  Company Number: US-BAYER-2013-111862

PATIENT
  Age: 76 Year
  Sex: Female
  Weight: 63 kg

DRUGS (6)
  1. ALEVE CAPLET [Suspect]
     Indication: TOOTHACHE
     Dosage: 2 DF, UNK
     Route: 048
  2. ALEVE CAPLET [Suspect]
     Indication: TOOTHACHE
     Dosage: UNK DF,UNK
     Route: 048
  3. POTASSIUM [Concomitant]
  4. SIMVASTATIN [Concomitant]
  5. DYAZIDE [Concomitant]
  6. PHILLIPS^ MILK OF MAGNESIA [Concomitant]

REACTIONS (2)
  - Abdominal pain upper [Not Recovered/Not Resolved]
  - Extra dose administered [None]
